FAERS Safety Report 9605069 (Version 2)
Quarter: 2013Q4

REPORT INFORMATION
  Report Type: Spontaneous
  Country: JP (occurrence: JP)
  Receive Date: 20131008
  Receipt Date: 20131008
  Transmission Date: 20140711
  Serious: Yes (Other)
  Sender: FDA-Public Use
  Company Number: PHHY2013JP086941

PATIENT
  Age: 55 Year
  Sex: Female

DRUGS (2)
  1. NEORAL [Suspect]
     Indication: RHEUMATOID ARTHRITIS
     Dosage: 100 MG, DAILY
     Route: 048
     Dates: start: 200809, end: 20130829
  2. NEORAL [Suspect]
     Indication: OFF LABEL USE
     Dosage: 100 MG, DAILY
     Dates: start: 20131005

REACTIONS (1)
  - Joint dislocation [Unknown]
